FAERS Safety Report 7736117-3 (Version None)
Quarter: 2011Q3

REPORT INFORMATION
  Report Type: 
  Country: None (occurrence: None)
  Receive Date: 20110908
  Receipt Date: 20110825
  Transmission Date: 20111222
  Serious: No
  Sender: FDA-Public Use
  Company Number: FR-JNJFOC-20110703053

PATIENT
  Sex: Male
  Weight: 52 kg

DRUGS (17)
  1. DURAGESIC-100 [Suspect]
     Indication: CANCER PAIN
     Route: 062
  2. KAYEXALATE [Concomitant]
  3. DURAGESIC-100 [Suspect]
     Route: 062
  4. CREON [Concomitant]
  5. LOVENOX [Concomitant]
  6. HYPERIUM [Concomitant]
  7. FERROUS SULFATE TAB [Concomitant]
  8. URSOLVAN [Concomitant]
  9. DURAGESIC-100 [Suspect]
     Route: 062
     Dates: start: 20110701
  10. ARANESP [Concomitant]
  11. LANTUS [Concomitant]
  12. PANTOPRAZOLE SODIUM [Concomitant]
  13. LASIX [Concomitant]
  14. UVEDOSE [Concomitant]
  15. NOVORAPID [Concomitant]
  16. PLAVIX [Concomitant]
  17. TENORMIN [Concomitant]

REACTIONS (3)
  - WRONG TECHNIQUE IN DRUG USAGE PROCESS [None]
  - DRUG PRESCRIBING ERROR [None]
  - DYSPNOEA [None]
